FAERS Safety Report 23692205 (Version 1)
Quarter: 2024Q1

REPORT INFORMATION
  Report Type: Spontaneous
  Country: US (occurrence: None)
  Receive Date: 20240329
  Receipt Date: 20240329
  Transmission Date: 20240410
  Serious: No
  Sender: FDA-Public Use
  Company Number: None

PATIENT
  Age: 23 Year
  Sex: Male

DRUGS (6)
  1. NOVOSEVEN RT [Suspect]
     Active Substance: COAGULATION FACTOR VIIA RECOMBINANT HUMAN
     Indication: Factor VIII deficiency
     Dosage: FREQUENCY : EVERY 6 HOURS;?
     Route: 042
     Dates: start: 202312
  2. NOVOSEVEN RT MP [Concomitant]
  3. BLUNT FILTER NEEDL [Concomitant]
  4. HEPARIN L/F SYR [Concomitant]
  5. SOD CHLOR POSIFLUS [Concomitant]
  6. HEMLIBRA SDV [Concomitant]

REACTIONS (2)
  - Haemorrhage [None]
  - Wisdom teeth removal [None]

NARRATIVE: CASE EVENT DATE: 20240328
